FAERS Safety Report 25340677 (Version 1)
Quarter: 2025Q2

REPORT INFORMATION
  Report Type: Spontaneous
  Country: GB (occurrence: GB)
  Receive Date: 20250521
  Receipt Date: 20250521
  Transmission Date: 20250716
  Serious: Yes (Other)
  Sender: TEVA
  Company Number: None

PATIENT
  Age: 88 Year
  Sex: Female
  Weight: 54 kg

DRUGS (4)
  1. AMOXICILLIN [Suspect]
     Active Substance: AMOXICILLIN
     Indication: Arthropod bite
     Dosage: 500MG TWICE A DAY, MORNING AND NIGHT, AND CLARITHROMYCIN AND LANSOPRAZOLE
     Route: 065
  2. CLARITHROMYCIN [Suspect]
     Active Substance: CLARITHROMYCIN
     Indication: Product used for unknown indication
     Route: 065
  3. CANDESARTAN [Concomitant]
     Active Substance: CANDESARTAN
     Indication: Hypertension
  4. LANSOPRAZOLE [Suspect]
     Active Substance: LANSOPRAZOLE
     Indication: Product used for unknown indication
     Route: 065

REACTIONS (3)
  - Hallucination [Recovered/Resolved]
  - Dysgeusia [Unknown]
  - Dry mouth [Unknown]

NARRATIVE: CASE EVENT DATE: 20250516
